FAERS Safety Report 8001145-X (Version None)
Quarter: 2011Q4

REPORT INFORMATION
  Report Type: 
  Country: None (occurrence: None)
  Receive Date: 20111219
  Receipt Date: 20111205
  Transmission Date: 20120403
  Serious: Yes (Hospitalization)
  Sender: FDA-Public Use
  Company Number: 2011MA017420

PATIENT
  Sex: Male
  Weight: 77.1115 kg

DRUGS (2)
  1. DIGOXIN [Suspect]
     Indication: PRODUCT USED FOR UNKNOWN INDICATION
     Dosage: 0.25 MG;QD;PO
     Route: 048
     Dates: start: 20070913, end: 20071214
  2. COUMADIN [Concomitant]

REACTIONS (21)
  - HEMIPARESIS [None]
  - ISCHAEMIC STROKE [None]
  - CEREBRAL SMALL VESSEL ISCHAEMIC DISEASE [None]
  - VISUAL FIELD DEFECT [None]
  - CARDIOMEGALY [None]
  - BLOOD PRESSURE INCREASED [None]
  - NERVOUS SYSTEM DISORDER [None]
  - HEMISENSORY NEGLECT [None]
  - VISUAL IMPAIRMENT [None]
  - PYREXIA [None]
  - PLEURAL EFFUSION [None]
  - EMOTIONAL DISTRESS [None]
  - CAROTID ARTERY STENOSIS [None]
  - CEREBROVASCULAR ACCIDENT [None]
  - CEREBRAL INFARCTION [None]
  - VERTEBRAL ARTERY STENOSIS [None]
  - ACUTE SINUSITIS [None]
  - CONFUSIONAL STATE [None]
  - MEMORY IMPAIRMENT [None]
  - MENTAL STATUS CHANGES [None]
  - AORTIC VALVE SCLEROSIS [None]
